FAERS Safety Report 5431908-6 (Version None)
Quarter: 2007Q3

REPORT INFORMATION
  Report Type: 
  Country: None (occurrence: None)
  Receive Date: 20070830
  Receipt Date: 20070820
  Transmission Date: 20080115
  Serious: Yes (Other)
  Sender: FDA-Public Use
  Company Number: US-PFIZER INC-2004050409

PATIENT
  Sex: Male
  Weight: 106.6 kg

DRUGS (8)
  1. LIPITOR [Suspect]
     Indication: BLOOD CHOLESTEROL
     Dosage: DAILY DOSE:10MG
     Route: 048
  2. ASPIRIN [Concomitant]
     Route: 065
  3. LUPRON [Concomitant]
     Route: 065
  4. ZESTRIL [Concomitant]
     Route: 065
  5. TRIAMTERENE AND HYDROCHLOROTHIAZIDE [Concomitant]
     Route: 065
  6. TOPROL-XL [Concomitant]
     Route: 065
  7. MULTIVITAMIN [Concomitant]
     Route: 065
  8. TRIAMTERENE [Concomitant]

REACTIONS (9)
  - BLOOD TRIGLYCERIDES INCREASED [None]
  - CORONARY ARTERIAL STENT INSERTION [None]
  - LIMB DISCOMFORT [None]
  - MUSCLE FATIGUE [None]
  - PAIN [None]
  - PAIN IN EXTREMITY [None]
  - PROSTATE CANCER [None]
  - UNEVALUABLE EVENT [None]
  - VERY LOW DENSITY LIPOPROTEIN INCREASED [None]
